FAERS Safety Report 18786703 (Version 48)
Quarter: 2024Q4

REPORT INFORMATION
  Report Type: Report from Study
  Country: BR (occurrence: BR)
  Receive Date: 20210126
  Receipt Date: 20241230
  Transmission Date: 20250115
  Serious: Yes (Hospitalization, Other)
  Sender: TAKEDA
  Company Number: BR-TAKEDA-2020TUS060000

PATIENT
  Age: 49 Year
  Sex: Female
  Weight: 61 kg

DRUGS (20)
  1. TEDUGLUTIDE [Suspect]
     Active Substance: TEDUGLUTIDE
     Indication: Short-bowel syndrome
     Dosage: 0.3 MILLILITER, QD
     Dates: start: 20201221
  2. TEDUGLUTIDE [Suspect]
     Active Substance: TEDUGLUTIDE
     Indication: Functional gastrointestinal disorder
     Dosage: 3.5 MILLIGRAM, QD
  3. TEDUGLUTIDE [Suspect]
     Active Substance: TEDUGLUTIDE
     Indication: Malnutrition
     Dosage: 0.28 MILLILITER, QD
  4. TEDUGLUTIDE [Suspect]
     Active Substance: TEDUGLUTIDE
     Indication: Malabsorption
     Dosage: 0.28 MILLILITER, QD
  5. TEDUGLUTIDE [Suspect]
     Active Substance: TEDUGLUTIDE
     Dosage: 0.28 MILLILITER, QD
  6. TEDUGLUTIDE [Suspect]
     Active Substance: TEDUGLUTIDE
     Dosage: 0.28 MILLILITER, QD
  7. TEDUGLUTIDE [Suspect]
     Active Substance: TEDUGLUTIDE
     Dosage: 30 MILLILITER, QD
  8. TEDUGLUTIDE [Suspect]
     Active Substance: TEDUGLUTIDE
     Dosage: 0.3 MILLILITER, QD
  9. TEDUGLUTIDE [Suspect]
     Active Substance: TEDUGLUTIDE
     Dosage: 0.3 MILLILITER, QD
  10. TEDUGLUTIDE [Suspect]
     Active Substance: TEDUGLUTIDE
     Dosage: 300 MILLIGRAM
  11. TEDUGLUTIDE [Suspect]
     Active Substance: TEDUGLUTIDE
     Dosage: 3 MILLIGRAM, QD
     Dates: start: 2022
  12. TEDUGLUTIDE [Suspect]
     Active Substance: TEDUGLUTIDE
     Dosage: 5 MILLIGRAM
  13. TEDUGLUTIDE [Suspect]
     Active Substance: TEDUGLUTIDE
     Dosage: 0.3 MILLILITER, QD
  14. TEDUGLUTIDE [Suspect]
     Active Substance: TEDUGLUTIDE
     Dosage: UNK
  15. TEDUGLUTIDE [Suspect]
     Active Substance: TEDUGLUTIDE
     Dosage: UNK, Q2WEEKS
     Dates: start: 202307
  16. TEDUGLUTIDE [Suspect]
     Active Substance: TEDUGLUTIDE
     Dosage: 2.8 MILLIGRAM, QD
  17. TEDUGLUTIDE [Suspect]
     Active Substance: TEDUGLUTIDE
     Dosage: 3 MILLIGRAM, QD
  18. LOPERAMIDE [Concomitant]
     Active Substance: LOPERAMIDE
     Dosage: UNK
  19. LOPERAMIDE [Concomitant]
     Active Substance: LOPERAMIDE
     Dosage: 2 MILLIGRAM
  20. DOMPERIDONE [Concomitant]
     Active Substance: DOMPERIDONE
     Dosage: UNK

REACTIONS (58)
  - Vascular device infection [Recovering/Resolving]
  - Device related infection [Unknown]
  - Pleural effusion [Recovering/Resolving]
  - Pneumonia [Recovering/Resolving]
  - Dyspnoea [Recovering/Resolving]
  - Weight decreased [Not Recovered/Not Resolved]
  - Paronychia [Recovering/Resolving]
  - Abdominal pain [Not Recovered/Not Resolved]
  - Dry mouth [Not Recovered/Not Resolved]
  - Weight increased [Unknown]
  - Dysmenorrhoea [Recovering/Resolving]
  - Malaise [Not Recovered/Not Resolved]
  - Inappropriate schedule of product administration [Unknown]
  - Incorrect dose administered [Unknown]
  - Product prescribing issue [Unknown]
  - Product use issue [Not Recovered/Not Resolved]
  - Product dose omission issue [Not Recovered/Not Resolved]
  - Nausea [Recovering/Resolving]
  - Urine output increased [Unknown]
  - Peripheral swelling [Recovering/Resolving]
  - Infusion site pain [Not Recovered/Not Resolved]
  - Hypophagia [Recovered/Resolved]
  - Weight fluctuation [Not Recovered/Not Resolved]
  - Swelling face [Recovering/Resolving]
  - Discouragement [Unknown]
  - Skin lesion [Unknown]
  - Weight gain poor [Unknown]
  - Insurance issue [Unknown]
  - Product distribution issue [Unknown]
  - Swelling [Recovering/Resolving]
  - Muscle spasms [Unknown]
  - Vertigo [Unknown]
  - Oxygen saturation decreased [Unknown]
  - Off label use [Unknown]
  - Chronic disease [Unknown]
  - Fluid retention [Unknown]
  - Cough [Recovering/Resolving]
  - Hypervolaemia [Unknown]
  - Asthenia [Recovered/Resolved]
  - Emotional disorder [Unknown]
  - Pyrexia [Recovered/Resolved]
  - Pain [Recovering/Resolving]
  - Frequent bowel movements [Unknown]
  - Constipation [Unknown]
  - Abnormal faeces [Recovering/Resolving]
  - Urine output decreased [Unknown]
  - Chills [Recovered/Resolved]
  - Nail bed inflammation [Recovering/Resolving]
  - Alopecia [Recovering/Resolving]
  - Application site discolouration [Recovered/Resolved]
  - Gastrointestinal disorder [Recovering/Resolving]
  - Nail infection [Unknown]
  - Device occlusion [Unknown]
  - Pain in extremity [Unknown]
  - Diarrhoea [Recovered/Resolved]
  - Product availability issue [Unknown]
  - Generalised oedema [Recovering/Resolving]
  - Influenza [Unknown]

NARRATIVE: CASE EVENT DATE: 20201221
